FAERS Safety Report 13027513 (Version 1)
Quarter: 2016Q4

REPORT INFORMATION
  Report Type: Spontaneous
  Country: US (occurrence: US)
  Receive Date: 20161214
  Receipt Date: 20161214
  Transmission Date: 20170207
  Serious: No
  Sender: FDA-Public Use
  Company Number: US-DUSA PHARMACEUTICALS, INC.-1060775

PATIENT
  Age: 69 Year
  Sex: Female
  Weight: 59.55 kg

DRUGS (5)
  1. LEVULAN KERASTICK [Suspect]
     Active Substance: AMINOLEVULINIC ACID HYDROCHLORIDE
     Indication: ACTINIC KERATOSIS
     Route: 061
     Dates: start: 20160616, end: 20160719
  2. EPIPEN [Concomitant]
     Active Substance: EPINEPHRINE
  3. METOPROLOL SUCCINATE. [Concomitant]
     Active Substance: METOPROLOL SUCCINATE
  4. ASPIRIN. [Concomitant]
     Active Substance: ASPIRIN
  5. SUMATRIPTAN. [Concomitant]
     Active Substance: SUMATRIPTAN

REACTIONS (5)
  - Feeling hot [Unknown]
  - Erythema [Not Recovered/Not Resolved]
  - Skin burning sensation [Unknown]
  - Capillary fragility [Unknown]
  - Telangiectasia [None]

NARRATIVE: CASE EVENT DATE: 20160726
